FAERS Safety Report 9213761 (Version 5)
Quarter: 2013Q4

REPORT INFORMATION
  Report Type: Report from Study
  Country: FR (occurrence: FR)
  Receive Date: 20130405
  Receipt Date: 20131009
  Transmission Date: 20140711
  Serious: Yes (Hospitalization)
  Sender: FDA-Public Use
  Company Number: FR-SANOFI-AVENTIS-2013SA035064

PATIENT
  Age: 76 Year
  Sex: Female

DRUGS (9)
  1. AFLIBERCEPT [Suspect]
     Indication: COLORECTAL CANCER METASTATIC
     Route: 041
     Dates: start: 20130312, end: 20130312
  2. 5-FU [Suspect]
     Indication: COLORECTAL CANCER METASTATIC
     Route: 040
     Dates: start: 20130312, end: 20130312
  3. 5-FU [Suspect]
     Indication: COLORECTAL CANCER METASTATIC
     Route: 041
     Dates: start: 20130312, end: 20130312
  4. IRINOTECAN [Suspect]
     Indication: COLORECTAL CANCER METASTATIC
     Route: 041
     Dates: start: 20130312, end: 20130312
  5. LEUCOVORIN [Suspect]
     Indication: COLORECTAL CANCER METASTATIC
     Route: 041
     Dates: start: 20130312, end: 20130312
  6. PLATELET AGGREGATION INHIBITORS [Concomitant]
  7. PROTON PUMP INHIBITORS [Concomitant]
  8. CALCIUM CHANNEL BLOCKERS [Concomitant]
  9. ANTIDEPRESSANTS [Concomitant]

REACTIONS (1)
  - Bone marrow failure [Recovered/Resolved]
